FAERS Safety Report 10007846 (Version 1)
Quarter: 2014Q1

REPORT INFORMATION
  Report Type: Spontaneous
  Country: GB (occurrence: GB)
  Receive Date: 20140313
  Receipt Date: 20140313
  Transmission Date: 20141002
  Serious: Yes (Other)
  Sender: FDA-Public Use
  Company Number: GB-BAUSCH-BL-2014-001216

PATIENT
  Age: 57 Year
  Sex: Male
  Weight: 91 kg

DRUGS (4)
  1. PREDNISOLONE [Suspect]
     Indication: SARCOIDOSIS
     Dates: start: 20120218
  2. PREDNISOLONE [Suspect]
     Dates: end: 20131002
  3. CIPRAMIL [Suspect]
     Indication: BIPOLAR DISORDER
     Dates: start: 1999
  4. DEPAKOTE [Suspect]
     Indication: BIPOLAR DISORDER
     Dates: start: 1999

REACTIONS (5)
  - Mental disorder [Not Recovered/Not Resolved]
  - Anxiety [Not Recovered/Not Resolved]
  - Depression [Not Recovered/Not Resolved]
  - Panic attack [Not Recovered/Not Resolved]
  - Condition aggravated [Not Recovered/Not Resolved]
